FAERS Safety Report 25799206 (Version 1)
Quarter: 2025Q3

REPORT INFORMATION
  Report Type: Spontaneous
  Country: US (occurrence: US)
  Receive Date: 20250913
  Receipt Date: 20250913
  Transmission Date: 20251021
  Serious: Yes (Death)
  Sender: AMGEN
  Company Number: US-AMGEN-USASP2025179315

PATIENT
  Age: 69 Year
  Sex: Male

DRUGS (3)
  1. XGEVA [Suspect]
     Active Substance: DENOSUMAB
     Indication: Hypercalcaemia
     Route: 065
  2. RITUXIMAB [Suspect]
     Active Substance: RITUXIMAB
     Indication: B-cell lymphoma
     Route: 065
  3. DEXAMETHASONE [Concomitant]
     Active Substance: DEXAMETHASONE
     Indication: B-cell lymphoma

REACTIONS (2)
  - Death [Fatal]
  - Therapy non-responder [Unknown]
